FAERS Safety Report 14389744 (Version 1)
Quarter: 2018Q1

REPORT INFORMATION
  Report Type: Spontaneous
  Country: US (occurrence: US)
  Receive Date: 20180115
  Receipt Date: 20180115
  Transmission Date: 20180509
  Serious: No
  Sender: FDA-Public Use
  Company Number: US-ALEXION PHARMACEUTICALS INC.-A201714808

PATIENT
  Age: 9 Year

DRUGS (2)
  1. SOLIRIS [Suspect]
     Active Substance: ECULIZUMAB
     Indication: PAROXYSMAL NOCTURNAL HAEMOGLOBINURIA
     Dosage: 600 MG, TIW
     Route: 042
     Dates: start: 201710, end: 20171227
  2. MEROPENEM. [Concomitant]
     Active Substance: MEROPENEM
     Indication: MENINGOCOCCAL INFECTION
     Dosage: PEDIATRIC DOSING
     Route: 065

REACTIONS (1)
  - Incorrect dose administered [Recovered/Resolved]

NARRATIVE: CASE EVENT DATE: 201710
